FAERS Safety Report 5013685-6 (Version None)
Quarter: 2006Q2

REPORT INFORMATION
  Report Type: 
  Country: None (occurrence: None)
  Receive Date: 20060525
  Receipt Date: 20060516
  Transmission Date: 20061013
  Serious: Yes (Death, Hospitalization, Other)
  Sender: FDA-Public Use
  Company Number: 163-20785-06040135

PATIENT
  Age: 74 Year
  Sex: Male

DRUGS (1)
  1. THALOMID [Suspect]
     Indication: MULTIPLE MYELOMA
     Dosage: 200 MG, DAILY; ORAL
     Route: 048
     Dates: start: 20060210, end: 20060419

REACTIONS (3)
  - ENDOCARDITIS BACTERIAL [None]
  - IMMUNOSUPPRESSION [None]
  - NEUTROPENIA [None]
